FAERS Safety Report 19738067 (Version 1)
Quarter: 2021Q3

REPORT INFORMATION
  Report Type: Report from Study
  Country: DE (occurrence: DE)
  Receive Date: 20210823
  Receipt Date: 20210823
  Transmission Date: 20211014
  Serious: Yes (Hospitalization, Other)
  Sender: FDA-Public Use
  Company Number: DE-MYLANLABS-2021M1053437

PATIENT
  Age: 4 Year
  Sex: Male

DRUGS (3)
  1. LEVETIRACETAM. [Suspect]
     Active Substance: LEVETIRACETAM
     Indication: EPILEPSY
     Dosage: 8 MILLILITER, QD, 4 MILLILITER, 2X/DAY (BID)
  2. PETNIDAN [Concomitant]
     Active Substance: ETHOSUXIMIDE
     Indication: PRODUCT USED FOR UNKNOWN INDICATION
     Dosage: 12 MILLILITER, QD,6 MILLILITER, 2X/DAY (BID)
  3. LEVETIRACETAM. [Suspect]
     Active Substance: LEVETIRACETAM
     Dosage: 2.5 MILLILITER

REACTIONS (4)
  - Seizure [Unknown]
  - Infection [Unknown]
  - Hallucination [Unknown]
  - Anxiety [Unknown]
